FAERS Safety Report 10698199 (Version 5)
Quarter: 2015Q3

REPORT INFORMATION
  Report Type: Report from Study
  Country: US (occurrence: US)
  Receive Date: 20150108
  Receipt Date: 20150909
  Transmission Date: 20151125
  Serious: Yes (Other)
  Sender: FDA-Public Use
  Company Number: US-SA-2014SA179651

PATIENT
  Age: 41 Year
  Sex: Female

DRUGS (2)
  1. AUBAGIO [Suspect]
     Active Substance: TERIFLUNOMIDE
     Indication: MULTIPLE SCLEROSIS
     Route: 048
  2. AUBAGIO [Suspect]
     Active Substance: TERIFLUNOMIDE
     Indication: MULTIPLE SCLEROSIS
     Route: 048
     Dates: start: 20141219

REACTIONS (19)
  - Fungal infection [Unknown]
  - Neck pain [Unknown]
  - Skin burning sensation [Unknown]
  - Productive cough [Unknown]
  - Urinary incontinence [Unknown]
  - Myalgia [Unknown]
  - Urinary tract infection [Unknown]
  - Pruritus [Unknown]
  - Neuralgia [Unknown]
  - Hypoaesthesia [Unknown]
  - Back pain [Unknown]
  - Off label use [Unknown]
  - Escherichia infection [Unknown]
  - Muscular weakness [Unknown]
  - Gait disturbance [Unknown]
  - Faecal incontinence [Unknown]
  - Feeling abnormal [Unknown]
  - Pain in extremity [Unknown]
  - Musculoskeletal pain [Unknown]

NARRATIVE: CASE EVENT DATE: 20141219
